FAERS Safety Report 23281521 (Version 2)
Quarter: 2023Q4

REPORT INFORMATION
  Report Type: Spontaneous
  Country: JP (occurrence: JP)
  Receive Date: 20231211
  Receipt Date: 20231219
  Transmission Date: 20240109
  Serious: Yes (Life-Threatening, Hospitalization, Other)
  Sender: FDA-Public Use
  Company Number: JP-ALKEM LABORATORIES LIMITED-JP-ALKEM-2023-15315

PATIENT
  Age: 44 Year
  Sex: Female

DRUGS (12)
  1. METFORMIN HYDROCHLORIDE [Suspect]
     Active Substance: METFORMIN HYDROCHLORIDE
     Indication: Type 2 diabetes mellitus
     Dosage: 1250 MILLIGRAM, QD (A DAY)
     Route: 065
  2. METFORMIN HYDROCHLORIDE [Suspect]
     Active Substance: METFORMIN HYDROCHLORIDE
     Indication: Suicide attempt
     Dosage: 10 DOSAGE FORM (10 TABLETS OF 500 MILLIGRAM)
     Route: 048
  3. SITAGLIPTIN PHOSPHATE [Concomitant]
     Active Substance: SITAGLIPTIN PHOSPHATE
     Indication: Type 2 diabetes mellitus
     Dosage: 50 MILLIGRAM, QD (A DAY)
     Route: 065
  4. INSULIN NOS [Concomitant]
     Active Substance: INSULIN NOS
     Indication: Type 2 diabetes mellitus
     Dosage: 6 UNITS, HS (INTERMEDIATE-ACTING BEFORE BEDTIME)
     Route: 065
  5. BIPERIDEN HYDROCHLORIDE [Concomitant]
     Active Substance: BIPERIDEN HYDROCHLORIDE
     Indication: Schizophrenia
     Dosage: 8 MILLIGRAM
     Route: 065
  6. VALPROIC ACID [Concomitant]
     Active Substance: VALPROIC ACID
     Indication: Schizophrenia
     Dosage: 600 MILLIGRAM
     Route: 065
  7. CARBAMAZEPINE [Concomitant]
     Active Substance: CARBAMAZEPINE
     Indication: Schizophrenia
     Dosage: 600 MILLIGRAM
     Route: 065
  8. MIRTAZAPINE [Concomitant]
     Active Substance: MIRTAZAPINE
     Indication: Schizophrenia
     Dosage: 15 MILLIGRAM
     Route: 065
  9. CLOMIPRAMINE [Concomitant]
     Active Substance: CLOMIPRAMINE
     Indication: Schizophrenia
     Dosage: 25 MILLIGRAM
     Route: 065
  10. CHLORPROMAZINE [Concomitant]
     Active Substance: CHLORPROMAZINE
     Indication: Schizophrenia
     Dosage: 25 MILLIGRAM
     Route: 065
  11. PROMETHAZINE [Concomitant]
     Active Substance: PROMETHAZINE HYDROCHLORIDE
     Indication: Schizophrenia
     Dosage: 12.5 MILLIGRAM
     Route: 065
  12. PHENOBARBITAL [Concomitant]
     Active Substance: PHENOBARBITAL
     Indication: Schizophrenia
     Dosage: 40 MILLIGRAM
     Route: 065

REACTIONS (7)
  - Shock [Recovered/Resolved]
  - Circulatory collapse [Recovered/Resolved]
  - Pneumonia aspiration [Recovered/Resolved]
  - Lactic acidosis [Recovered/Resolved]
  - Overdose [Unknown]
  - Drug level increased [Recovered/Resolved]
  - Drug interaction [Unknown]
